FAERS Safety Report 7772871-2 (Version None)
Quarter: 2011Q3

REPORT INFORMATION
  Report Type: 
  Country: None (occurrence: None)
  Receive Date: 20110922
  Receipt Date: 20110616
  Transmission Date: 20111222
  Serious: No
  Sender: FDA-Public Use
  Company Number: US-ASTRAZENECA-2011SE36808

PATIENT
  Age: 26 Year
  Sex: Male

DRUGS (4)
  1. SEROQUEL XR [Suspect]
     Indication: SCHIZOPHRENIA, PARANOID TYPE
     Route: 048
     Dates: start: 20080101
  2. HALOPERIDOL [Concomitant]
  3. BUPROPION HCL [Concomitant]
  4. BENZTROPINE MESYLATE [Concomitant]

REACTIONS (5)
  - DEHYDRATION [None]
  - ARTHRALGIA [None]
  - ARTHRITIS [None]
  - GAIT DISTURBANCE [None]
  - THERAPEUTIC RESPONSE UNEXPECTED [None]
